FAERS Safety Report 13642407 (Version 4)
Quarter: 2017Q3

REPORT INFORMATION
  Report Type: Spontaneous
  Country: CL (occurrence: CL)
  Receive Date: 20170612
  Receipt Date: 20170801
  Transmission Date: 20171127
  Serious: Yes (Life-Threatening, Hospitalization, Other)
  Sender: FDA-Public Use
  Company Number: CL-GLAXOSMITHKLINE-CL2017GSK088003

PATIENT
  Sex: Male
  Weight: 87 kg

DRUGS (4)
  1. TIVICAY [Suspect]
     Active Substance: DOLUTEGRAVIR SODIUM
     Indication: HIV TEST POSITIVE
     Dosage: 50 MG, QD
     Route: 048
     Dates: start: 201609, end: 20170515
  2. KIVEXA [Suspect]
     Active Substance: ABACAVIR SULFATE\LAMIVUDINE
     Indication: HIV TEST POSITIVE
     Dosage: UNK
     Route: 048
     Dates: start: 201609, end: 20170515
  3. PHENTERMINE. [Concomitant]
     Active Substance: PHENTERMINE
     Indication: PRODUCT USED FOR UNKNOWN INDICATION
     Dosage: 18.75 MG, QD
     Dates: start: 201611, end: 201611
  4. LEVOCETIRIZINE [Concomitant]
     Active Substance: LEVOCETIRIZINE
     Indication: PRODUCT USED FOR UNKNOWN INDICATION
     Dosage: 5 MG, QD
     Dates: start: 2016, end: 20170510

REACTIONS (12)
  - Hepatitis acute [Unknown]
  - Pyrexia [Unknown]
  - Liver transplant [Unknown]
  - Hepatic necrosis [Unknown]
  - Nausea [Unknown]
  - Acute hepatic failure [Unknown]
  - Jaundice [Unknown]
  - Drug-induced liver injury [Recovered/Resolved with Sequelae]
  - Confusional state [Unknown]
  - Abdominal pain [Unknown]
  - Decreased appetite [Unknown]
  - Abdominal pain upper [Unknown]

NARRATIVE: CASE EVENT DATE: 201704
